FAERS Safety Report 6070193-1 (Version None)
Quarter: 2009Q1

REPORT INFORMATION
  Report Type: 
  Country: None (occurrence: None)
  Receive Date: 20090204
  Receipt Date: 20090123
  Transmission Date: 20090719
  Serious: Yes (Other)
  Sender: FDA-Public Use
  Company Number: 000255

PATIENT
  Sex: Male

DRUGS (1)
  1. EDEX (EDEX) [Suspect]
     Indication: ERECTILE DYSFUNCTION
     Dosage: 10 UG 2X/WEEK INTRACAVERNOUS
     Route: 017
     Dates: start: 20080601

REACTIONS (1)
  - EMBOLISM [None]
